FAERS Safety Report 26041543 (Version 1)
Quarter: 2025Q4

REPORT INFORMATION
  Report Type: Spontaneous
  Country: EU (occurrence: EU)
  Receive Date: 20251113
  Receipt Date: 20251113
  Transmission Date: 20260117
  Serious: Yes (Other)
  Sender: PFIZER
  Company Number: EU-PFIZER INC-202500220972

PATIENT
  Age: 43 Year
  Sex: Female

DRUGS (1)
  1. TUKYSA [Suspect]
     Active Substance: TUCATINIB
     Dosage: 150X4 DAILY
     Dates: start: 20251001

REACTIONS (1)
  - Hyperpyrexia [Unknown]

NARRATIVE: CASE EVENT DATE: 20251001
